FAERS Safety Report 15767151 (Version 11)
Quarter: 2019Q3

REPORT INFORMATION
  Report Type: Report from Study
  Country: US (occurrence: US)
  Receive Date: 20181227
  Receipt Date: 20190920
  Transmission Date: 20191004
  Serious: Yes (Death, Hospitalization, Other)
  Sender: FDA-Public Use
  Company Number: US-TESAROUBC-2018-TSO2601-US

PATIENT
  Age: 65 Year
  Sex: Female

DRUGS (2)
  1. NIRAPARIB [Suspect]
     Active Substance: NIRAPARIB
     Dosage: 200 MG, QD, HS
     Dates: start: 20190128
  2. NIRAPARIB [Suspect]
     Active Substance: NIRAPARIB
     Dosage: 300 MG, QD IN PM TAKEN WITH FOOD
     Dates: start: 20181211, end: 20190110

REACTIONS (22)
  - Sudden death [Fatal]
  - Stomatitis [Not Recovered/Not Resolved]
  - Nausea [Recovered/Resolved]
  - Weight decreased [Recovered/Resolved]
  - Heart rate increased [Not Recovered/Not Resolved]
  - Drug ineffective [Unknown]
  - Throat tightness [Recovered/Resolved]
  - Pharyngeal ulceration [Recovered/Resolved]
  - Dizziness [Recovered/Resolved]
  - Bone marrow failure [Not Recovered/Not Resolved]
  - Oropharyngeal pain [Not Recovered/Not Resolved]
  - Dysphagia [Recovered/Resolved]
  - Feeling jittery [Recovered/Resolved]
  - Fatigue [Not Recovered/Not Resolved]
  - Decreased appetite [Recovered/Resolved]
  - Anxiety [Recovered/Resolved]
  - Thrombocytopenia [Recovered/Resolved]
  - Vomiting [Recovered/Resolved]
  - Oral mucosal blistering [Not Recovered/Not Resolved]
  - Cholelithiasis [Unknown]
  - Abdominal pain upper [Not Recovered/Not Resolved]
  - Dry mouth [Recovering/Resolving]

NARRATIVE: CASE EVENT DATE: 201812
